FAERS Safety Report 8345682 (Version 2)
Quarter: 2024Q1

REPORT INFORMATION
  Report Type: Spontaneous
  Country: FR (occurrence: FR)
  Receive Date: 20120120
  Receipt Date: 20240322
  Transmission Date: 20240409
  Serious: Yes (Hospitalization)
  Sender: FDA-Public Use
  Company Number: FR-NOVOPROD-343019

PATIENT
  Age: 77 Year
  Sex: Male

DRUGS (4)
  1. REPAGLINIDE [Suspect]
     Active Substance: REPAGLINIDE
     Indication: Diabetes mellitus
     Dosage: UNK, PO
     Route: 048
     Dates: start: 20111217, end: 20111219
  2. HUMALOG [Suspect]
     Active Substance: INSULIN LISPRO
     Indication: Diabetes mellitus
     Dosage: UNK
     Dates: start: 20111217, end: 20111217
  3. OXAZEPAM [Suspect]
     Active Substance: OXAZEPAM
     Indication: Diabetes mellitus
     Dosage: UNK
     Dates: start: 20111217
  4. LANTUS [Suspect]
     Active Substance: INSULIN GLARGINE
     Indication: Diabetes mellitus
     Dosage: UNK
     Dates: start: 20111217, end: 20111226

REACTIONS (1)
  - Rash [Not Recovered/Not Resolved]

NARRATIVE: CASE EVENT DATE: 20111223
